FAERS Safety Report 4561246-5 (Version None)
Quarter: 2005Q1

REPORT INFORMATION
  Report Type: 
  Country: None (occurrence: None)
  Receive Date: 20050121
  Receipt Date: 20050107
  Transmission Date: 20050727
  Serious: Yes (Congenital Anomaly)
  Sender: FDA-Public Use
  Company Number: 2005-BP-00252RO

PATIENT
  Sex: 0

DRUGS (6)
  1. AZATHIOPRINE [Suspect]
     Dosage: PATERNAL EXPOSURE
  2. OMEPRAZOLE [Concomitant]
  3. FUROSEMIDE (FUROSEMIDE) [Concomitant]
  4. METOPROLOL TARTRATE [Concomitant]
  5. FELODIPINE [Concomitant]
  6. PREDNISONE [Concomitant]

REACTIONS (2)
  - SYNDACTYLY [None]
  - TRANSMISSION OF DRUG VIA SEMEN [None]
